FAERS Safety Report 8809183 (Version 1)
Quarter: 2012Q4

REPORT INFORMATION
  Report Type: Report from Study
  Country: SE (occurrence: SE)
  Receive Date: 20120926
  Receipt Date: 20120926
  Transmission Date: 20130627
  Serious: Yes (Other)
  Sender: FDA-Public Use
  Company Number: SE-UCBSA-067260

PATIENT
  Age: 59 Year
  Sex: Female

DRUGS (1)
  1. CIMZIA [Suspect]
     Indication: ARTHRITIS
     Dosage: 200 ,200 MG
     Route: 058
     Dates: start: 20120110, end: 20120227

REACTIONS (1)
  - Pustular psoriasis [Recovering/Resolving]
